FAERS Safety Report 23671652 (Version 1)
Quarter: 2024Q1

REPORT INFORMATION
  Report Type: Spontaneous
  Country: US (occurrence: US)
  Receive Date: 20240326
  Receipt Date: 20240326
  Transmission Date: 20240410
  Serious: Yes (Other)
  Sender: FDA-Public Use
  Company Number: US-STRIDES ARCOLAB LIMITED-2023SP016477

PATIENT
  Age: 72 Year
  Sex: Female

DRUGS (4)
  1. TRIAMCINOLONE ACETONIDE [Suspect]
     Active Substance: TRIAMCINOLONE ACETONIDE
     Indication: Pityriasis rubra pilaris
     Dosage: UNK, OINTMENT
     Route: 061
  2. HYDROCORTISONE [Suspect]
     Active Substance: HYDROCORTISONE
     Indication: Pityriasis rubra pilaris
     Dosage: UNK
     Route: 061
  3. CLOBETASOL [Suspect]
     Active Substance: CLOBETASOL
     Indication: Pityriasis rubra pilaris
     Dosage: UNK, BID
     Route: 061
  4. ACITRETIN [Concomitant]
     Active Substance: ACITRETIN
     Indication: Pityriasis rubra pilaris
     Dosage: 25 MILLIGRAM DAILY
     Route: 065

REACTIONS (2)
  - Disease progression [Unknown]
  - Drug ineffective [Unknown]
